FAERS Safety Report 18390145 (Version 1)
Quarter: 2020Q4

REPORT INFORMATION
  Report Type: Spontaneous
  Country: IT (occurrence: IT)
  Receive Date: 20201015
  Receipt Date: 20201015
  Transmission Date: 20210114
  Serious: Yes (Life-Threatening, Hospitalization, Other)
  Sender: FDA-Public Use
  Company Number: NVSC2020IT254470

PATIENT
  Age: 38 Year
  Sex: Female

DRUGS (9)
  1. LACOSAMIDE. [Interacting]
     Active Substance: LACOSAMIDE
     Indication: EPILEPSY
     Dosage: 400 MG, Q8H
     Route: 042
  2. LACOSAMIDE. [Interacting]
     Active Substance: LACOSAMIDE
     Dosage: 400 MILLIGRAM, 3X/DAY (TID)
     Route: 042
  3. DOMPERIDONE [Interacting]
     Active Substance: DOMPERIDONE
     Indication: IMPAIRED GASTRIC EMPTYING
     Dosage: 10 MG, Q8H
     Route: 065
  4. DOMPERIDONE [Interacting]
     Active Substance: DOMPERIDONE
     Dosage: 2 DF, RECEIVED 2 DOSES
     Route: 065
  5. DOMPERIDONE [Interacting]
     Active Substance: DOMPERIDONE
     Dosage: 10 MILLIGRAM, 3X/DAY (TID)
     Route: 065
  6. LEVETIRACETAM. [Suspect]
     Active Substance: LEVETIRACETAM
     Indication: SEIZURE PROPHYLAXIS
     Dosage: 1 G, Q8H
     Route: 042
  7. LACOSAMIDE. [Interacting]
     Active Substance: LACOSAMIDE
     Indication: GENERALISED TONIC-CLONIC SEIZURE
     Dosage: INTRAVENOUS 400MG INFUSION 3 TIMES/DAY
     Route: 041
  8. VALPROATE [Concomitant]
     Active Substance: VALPROIC ACID
     Indication: GENERALISED TONIC-CLONIC SEIZURE
     Dosage: 400 MILLIGRAM, 3X/DAY (TID)
     Route: 042
  9. LEVETIRACETAM. [Suspect]
     Active Substance: LEVETIRACETAM
     Dosage: 1 GRAM, 3X/DAY (TID)
     Route: 042

REACTIONS (9)
  - Generalised tonic-clonic seizure [Unknown]
  - Prescribed overdose [Unknown]
  - Ventricular fibrillation [Recovered/Resolved]
  - Electrocardiogram QT prolonged [Recovered/Resolved]
  - Ventricular tachycardia [Recovered/Resolved]
  - Product use in unapproved indication [Unknown]
  - Drug interaction [Recovered/Resolved]
  - Arrhythmia [Recovered/Resolved]
  - Off label use [Unknown]
